FAERS Safety Report 6686938-3 (Version None)
Quarter: 2010Q2

REPORT INFORMATION
  Report Type: 
  Country: None (occurrence: None)
  Receive Date: 20100419
  Receipt Date: 20100407
  Transmission Date: 20101027
  Serious: Yes (Other)
  Sender: FDA-Public Use
  Company Number: PHEH2006US04718

PATIENT
  Sex: Female
  Weight: 81.632 kg

DRUGS (34)
  1. AREDIA [Suspect]
     Indication: BONE CANCER METASTATIC
     Dosage: UNK, QMO
     Dates: start: 20020221, end: 20031021
  2. ZOMETA [Suspect]
     Indication: METASTASES TO BONE
     Dosage: UNK, QMO
     Dates: start: 20030101
  3. FEMARA [Concomitant]
     Indication: BREAST CANCER
     Dosage: UNK
     Dates: start: 20020201
  4. SYNTHROID [Concomitant]
     Dosage: 0.112 MG, UNK
  5. CELEBREX [Concomitant]
     Dosage: 200 MG, BID
  6. NASONEX [Concomitant]
  7. VITAMIN E [Concomitant]
     Dosage: 1000 IU, QD
     Route: 048
  8. VITAMIN C [Concomitant]
  9. SELENIUM [Concomitant]
  10. CLARINEX /USA/ [Concomitant]
  11. THERATOPE [Concomitant]
  12. LEXAPRO [Concomitant]
  13. WELLBUTRIN [Concomitant]
  14. CLARITIN [Concomitant]
  15. CIPROFLOXACIN [Concomitant]
  16. CEPHALEXIN [Concomitant]
  17. METHYLPREDNISOLONE [Concomitant]
  18. LEVAQUIN [Concomitant]
  19. HYDROCODONE BITARTRATE [Concomitant]
  20. CHLORHEXIDINE GLUCONATE [Concomitant]
  21. PERIOGARD [Concomitant]
  22. FLUCONAZOLE [Concomitant]
  23. MOBIC [Concomitant]
  24. ULTRAM [Concomitant]
  25. PENICILLIN VK [Concomitant]
  26. CYCLOBENZAPRINE [Concomitant]
  27. CHANTIX [Concomitant]
  28. AMOXICILLIN [Concomitant]
  29. PROTONIX [Concomitant]
  30. RADIATION [Concomitant]
  31. LEVSIN [Concomitant]
  32. TYLENOL-500 [Concomitant]
  33. LORATADINE [Concomitant]
  34. HYDROCODONE BITARTRATE AND ACETAMINOPHEN [Concomitant]

REACTIONS (34)
  - BONE DENSITY DECREASED [None]
  - BONE DISORDER [None]
  - BREAST RECONSTRUCTION [None]
  - CERVICAL SPINE FLATTENING [None]
  - DEBRIDEMENT [None]
  - DENTURE WEARER [None]
  - DEPRESSION [None]
  - DEVICE FAILURE [None]
  - DRY MOUTH [None]
  - EDENTULOUS [None]
  - EMOTIONAL DISTRESS [None]
  - ENDODONTIC PROCEDURE [None]
  - GINGIVAL RECESSION [None]
  - GINGIVAL SWELLING [None]
  - HYPOAESTHESIA [None]
  - INGROWN HAIR [None]
  - INJURY [None]
  - INTERVERTEBRAL DISC OPERATION [None]
  - KERATOCONJUNCTIVITIS SICCA [None]
  - LACRIMATION INCREASED [None]
  - LUNG DISORDER [None]
  - NECK PAIN [None]
  - OSTEOARTHRITIS [None]
  - OSTEONECROSIS [None]
  - OSTEOSCLEROSIS [None]
  - PAIN [None]
  - PATHOLOGICAL FRACTURE [None]
  - PLEURAL EFFUSION [None]
  - RADICULOPATHY [None]
  - SEQUESTRECTOMY [None]
  - SPINAL OSTEOARTHRITIS [None]
  - TENOSYNOVITIS STENOSANS [None]
  - TOOTH FRACTURE [None]
  - TOOTH LOSS [None]
